FAERS Safety Report 24080917 (Version 1)
Quarter: 2024Q3

REPORT INFORMATION
  Report Type: Spontaneous
  Country: JP (occurrence: JP)
  Receive Date: 20240711
  Receipt Date: 20240711
  Transmission Date: 20241016
  Serious: Yes (Other)
  Sender: ASTELLAS
  Company Number: JP-ASTELLAS-2024US017097

PATIENT
  Age: 62 Year
  Sex: Female

DRUGS (6)
  1. CRESEMBA [Suspect]
     Active Substance: ISAVUCONAZONIUM SULFATE
     Indication: Aspergillus infection
     Dosage: 200 MG, THRICE DAILY (THREE TIMES DAILY/IN 8 HOURS)
     Route: 041
     Dates: start: 20240320, end: 20240321
  2. CRESEMBA [Suspect]
     Active Substance: ISAVUCONAZONIUM SULFATE
     Dosage: 200 MG, ONCE DAILY (ALSO REPORTED IN 8 HOUR)
     Route: 041
     Dates: start: 20240322, end: 20240330
  3. CRESEMBA [Suspect]
     Active Substance: ISAVUCONAZONIUM SULFATE
     Indication: Aspergillus infection
     Dosage: 200 MG, ONCE DAILY (IN 1 DAY)
     Route: 048
     Dates: start: 20240331, end: 20240421
  4. CRESEMBA [Suspect]
     Active Substance: ISAVUCONAZONIUM SULFATE
     Dosage: 200 MG, ONCE DAILY (IN 1 DAY)
     Route: 048
     Dates: start: 20240507, end: 20240602
  5. OFEV [Suspect]
     Active Substance: NINTEDANIB
     Indication: Idiopathic pulmonary fibrosis
     Route: 048
     Dates: start: 20210824, end: 20240430
  6. OFEV [Suspect]
     Active Substance: NINTEDANIB
     Dosage: 100 MG, ONCE DAILY (IN 1 DAY)
     Route: 048
     Dates: start: 20240507, end: 20240602

REACTIONS (3)
  - Polymyositis [Unknown]
  - Condition aggravated [Unknown]
  - Diarrhoea [Recovered/Resolved]

NARRATIVE: CASE EVENT DATE: 20240401
